FAERS Safety Report 17847781 (Version 2)
Quarter: 2020Q2

REPORT INFORMATION
  Report Type: Report from Study
  Country: CA (occurrence: CA)
  Receive Date: 20200601
  Receipt Date: 20200623
  Transmission Date: 20200714
  Serious: Yes (Other)
  Sender: FDA-Public Use
  Company Number: CA-UCBSA-2020015244

PATIENT
  Age: 43 Year
  Sex: Female

DRUGS (4)
  1. CERTOLIZUMAB PEGOL ASP [Suspect]
     Active Substance: CERTOLIZUMAB PEGOL
     Dosage: 200 MILLIGRAM, EV 2 WEEKS(QOW)
     Route: 058
     Dates: end: 20200327
  2. CERTOLIZUMAB PEGOL ASP [Suspect]
     Active Substance: CERTOLIZUMAB PEGOL
     Indication: ANKYLOSING SPONDYLITIS
     Dosage: 400 MILLIGRAM, EV 2 WEEKS(QOW)
     Route: 058
     Dates: start: 20190316
  3. DULOXETINE. [Concomitant]
     Active Substance: DULOXETINE
     Indication: ANXIETY
     Dosage: 60 MILLIGRAM, ONCE DAILY (QD)
  4. CERTOLIZUMAB PEGOL ASP [Suspect]
     Active Substance: CERTOLIZUMAB PEGOL
     Dosage: 400 MILLIGRAM, EV 2 WEEKS(QOW)
     Route: 058
     Dates: start: 20200328

REACTIONS (8)
  - Peripheral swelling [Recovering/Resolving]
  - Skin discolouration [Recovering/Resolving]
  - Anxiety [Recovering/Resolving]
  - Injection site bruising [Recovering/Resolving]
  - Injection site swelling [Recovering/Resolving]
  - Off label use [Unknown]
  - Abdominal pain [Unknown]
  - Acne [Unknown]

NARRATIVE: CASE EVENT DATE: 20200328
